FAERS Safety Report 8592175-8 (Version None)
Quarter: 2012Q3

REPORT INFORMATION
  Report Type: 
  Country: None (occurrence: None)
  Receive Date: 20120814
  Receipt Date: 20120802
  Transmission Date: 20120928
  Serious: Yes (Other)
  Sender: FDA-Public Use
  Company Number: GB-ELI_LILLY_AND_COMPANY-GB201205005431

PATIENT
  Age: 18 Year
  Sex: Female

DRUGS (4)
  1. METHYLPHENIDATE HCL [Concomitant]
  2. STRATTERA [Suspect]
     Dosage: 25MG, UNK
  3. STRATTERA [Suspect]
     Dosage: 1.2 MG/KG, UNK
  4. STRATTERA [Suspect]
     Indication: ATTENTION DEFICIT/HYPERACTIVITY DISORDER
     Dosage: 0.5 MG/KG, QD
     Dates: start: 20110919

REACTIONS (5)
  - SYNCOPE [None]
  - NAUSEA [None]
  - DIZZINESS [None]
  - HEAD INJURY [None]
  - COUGH [None]
